FAERS Safety Report 8378481-0 (Version None)
Quarter: 2012Q2

REPORT INFORMATION
  Report Type: 
  Country: None (occurrence: None)
  Receive Date: 20120522
  Receipt Date: 20110831
  Transmission Date: 20120825
  Serious: No
  Sender: FDA-Public Use
  Company Number: US-ASTRAZENECA-2011SE52696

PATIENT
  Age: 72 Year
  Sex: Female

DRUGS (11)
  1. BUPROPION HCL [Concomitant]
  2. CLOTRIMAZOLE [Concomitant]
  3. SYMBICORT [Concomitant]
  4. AMLODIPINE BESYLATE [Concomitant]
  5. GRISEOFULVIN [Concomitant]
  6. NITROFURANTOIN [Concomitant]
  7. OMEPRAZOLE [Suspect]
     Route: 048
     Dates: start: 20050628
  8. RECLAST [Concomitant]
  9. CALCIUM 500/VITAMIN D [Concomitant]
  10. PROAIR HFA [Concomitant]
  11. QVAR 40 [Concomitant]

REACTIONS (2)
  - WHEEZING [None]
  - ASTHMA [None]
